FAERS Safety Report 19959942 (Version 1)
Quarter: 2021Q4

REPORT INFORMATION
  Report Type: Spontaneous
  Country: US (occurrence: US)
  Receive Date: 20211015
  Receipt Date: 20211015
  Transmission Date: 20220303
  Serious: Yes (Hospitalization)
  Sender: FDA-Public Use
  Company Number: None

PATIENT
  Age: 49 Year
  Sex: Female
  Weight: 92.7 kg

DRUGS (14)
  1. REGEN-COV [Suspect]
     Active Substance: CASIRIVIMAB\IMDEVIMAB
     Indication: COVID-19
     Dosage: ?          OTHER FREQUENCY:ONCE;
     Route: 041
  2. Apap 1000mg prn [Concomitant]
  3. Albuterol inhaler pnr [Concomitant]
  4. Buproprion xl 150mg x 24hr [Concomitant]
  5. vitamin d 250mcg daily [Concomitant]
  6. clonazepam 1mg prn [Concomitant]
  7. premarin vag cream nightly [Concomitant]
  8. desvenlafaxine 100mg daily [Concomitant]
  9. metformin 500mg bid [Concomitant]
  10. misoprostol 200mcg night before proced [Concomitant]
  11. pregabalin 75mg bid [Concomitant]
  12. ropinerole 2mg tid [Concomitant]
  13. vitamin b - 12 100mcg weekly [Concomitant]
  14. XIIDRA 5% eye drop bid [Concomitant]

REACTIONS (4)
  - Paraesthesia [None]
  - Pruritus [None]
  - Chest discomfort [None]
  - Throat irritation [None]

NARRATIVE: CASE EVENT DATE: 20211012
